FAERS Safety Report 5578989-7 (Version None)
Quarter: 2007Q4

REPORT INFORMATION
  Report Type: 
  Country: None (occurrence: None)
  Receive Date: 20071228
  Receipt Date: 20071214
  Transmission Date: 20080405
  Serious: Yes (Other)
  Sender: FDA-Public Use
  Company Number: 2007-05778

PATIENT
  Age: 21 Year
  Sex: Female

DRUGS (1)
  1. CARISOPRODOL [Suspect]
     Indication: DRUG USE FOR UNKNOWN INDICATION
     Dosage: 20 TABLET, DAILY,

REACTIONS (7)
  - ANXIETY [None]
  - DRUG WITHDRAWAL SYNDROME [None]
  - HALLUCINATION, VISUAL [None]
  - INSOMNIA [None]
  - MUSCLE TWITCHING [None]
  - PARANOIA [None]
  - TREMOR [None]
